FAERS Safety Report 4695585-4 (Version None)
Quarter: 2005Q2

REPORT INFORMATION
  Report Type: 
  Country: None (occurrence: None)
  Receive Date: 20050524
  Receipt Date: 20050518
  Transmission Date: 20051028
  Serious: Yes (Death, Hospitalization)
  Sender: FDA-Public Use
  Company Number: 2005AP02913

PATIENT
  Age: 78 Year

DRUGS (5)
  1. SEROQUEL [Suspect]
     Route: 048
     Dates: start: 20050501
  2. MYSLEE [Suspect]
     Route: 048
     Dates: start: 20050501
  3. BLOPRESS [Suspect]
     Route: 048
     Dates: start: 20050501
  4. LOXONIN [Suspect]
     Route: 048
     Dates: start: 20050505
  5. MOBIC [Suspect]
     Route: 048
     Dates: start: 20050505

REACTIONS (1)
  - LIVER DISORDER [None]
